FAERS Safety Report 8243194-2 (Version None)
Quarter: 2012Q1

REPORT INFORMATION
  Report Type: 
  Country: None (occurrence: None)
  Receive Date: 20120329
  Receipt Date: 20120322
  Transmission Date: 20120608
  Serious: Yes (Other)
  Sender: FDA-Public Use
  Company Number: BR-SANOFI-AVENTIS-2012SA020352

PATIENT
  Age: 62 Year
  Sex: Female
  Weight: 67 kg

DRUGS (8)
  1. LANTUS [Suspect]
     Route: 065
     Dates: start: 20060101
  2. INSULINS AND ANALOGUES,FAST-ACTING [Suspect]
     Route: 058
  3. CRESTOR [Concomitant]
     Route: 048
  4. CALCIUM CARBONATE [Concomitant]
     Route: 048
  5. AUTOPEN 24 [Suspect]
     Indication: DEVICE THERAPY
  6. BONIVA [Concomitant]
     Dosage: ONCE A MONTH
     Route: 048
  7. ALL OTHER THERAPEUTIC PRODUCTS [Concomitant]
     Indication: KIDNEY INFECTION
     Route: 048
  8. PHARMATON [Concomitant]
     Indication: VITAMIN SUPPLEMENTATION
     Route: 048

REACTIONS (6)
  - IMPAIRED REASONING [None]
  - KIDNEY INFECTION [None]
  - HYPERHIDROSIS [None]
  - HYPERGLYCAEMIA [None]
  - HYPOGLYCAEMIA [None]
  - TACHYCARDIA [None]
